FAERS Safety Report 10025233 (Version 1)
Quarter: 2014Q1

REPORT INFORMATION
  Report Type: Spontaneous
  Country: US (occurrence: None)
  Receive Date: 20140318
  Receipt Date: 20140318
  Transmission Date: 20141002
  Serious: Yes (Hospitalization, Other)
  Sender: FDA-Public Use
  Company Number: 2181589

PATIENT
  Age: 29 Year
  Sex: Female

DRUGS (7)
  1. BUPIVACAINE HCL INJ, USP (BUPIVACAINE HYDROCHLORIDE) [Suspect]
     Indication: NERVE BLOCK
     Route: 008
     Dates: start: 20130718
  2. BUPIVACAINE HCL INJ, USP (BUPIVACAINE HYDROCHLORIDE) [Suspect]
     Indication: NEURALGIA
     Route: 008
     Dates: start: 20130718
  3. DICLOFENAC SODIUM ER [Concomitant]
  4. GABAPENTIN [Concomitant]
  5. ADDERALL [Concomitant]
  6. CLONAZEPAM [Concomitant]
  7. SERTRALINE [Concomitant]

REACTIONS (27)
  - Gait disturbance [None]
  - Dyskinesia [None]
  - Intervertebral disc protrusion [None]
  - Radiculopathy [None]
  - Neuritis [None]
  - Hypertension [None]
  - Flushing [None]
  - Night sweats [None]
  - Confusional state [None]
  - Peripheral coldness [None]
  - Peripheral coldness [None]
  - Pelvic mass [None]
  - Ascites [None]
  - Hypoaesthesia [None]
  - Muscular weakness [None]
  - Paraesthesia [None]
  - Back pain [None]
  - Pyrexia [None]
  - Blood pressure decreased [None]
  - Chills [None]
  - Nausea [None]
  - Headache [None]
  - Drug effect delayed [None]
  - Drug effect decreased [None]
  - Wrong technique in drug usage process [None]
  - Medication error [None]
  - Product quality issue [None]
